FAERS Safety Report 12870384 (Version 1)
Quarter: 2016Q4

REPORT INFORMATION
  Report Type: Spontaneous
  Country: US (occurrence: US)
  Receive Date: 20161021
  Receipt Date: 20161021
  Transmission Date: 20170207
  Serious: Yes (Hospitalization)
  Sender: FDA-Public Use
  Company Number: None

PATIENT
  Age: 64 Year
  Sex: Male

DRUGS (4)
  1. ZOMETA [Suspect]
     Active Substance: ZOLEDRONIC ACID
     Indication: BONE DISORDER
     Dates: start: 20160803
  2. ISOTONIC VITIAMS-MULTI [Concomitant]
  3. PAIN MEDS [Concomitant]
     Active Substance: UNSPECIFIED INGREDIENT
  4. PREDISONE [Concomitant]
     Active Substance: PREDNISONE

REACTIONS (6)
  - Hypoaesthesia [None]
  - Pain [None]
  - Pain in extremity [None]
  - Urinary retention [None]
  - Walking aid user [None]
  - Adverse drug reaction [None]

NARRATIVE: CASE EVENT DATE: 20160808
